FAERS Safety Report 7221632 (Version 5)
Quarter: 2014Q2

REPORT INFORMATION
  Report Type: Spontaneous
  Country: US (occurrence: US)
  Receive Date: 20091217
  Receipt Date: 20140425
  Transmission Date: 20141212
  Serious: Yes (Hospitalization)
  Sender: FDA-Public Use
  Company Number: US-JNJFOC-20090608626

PATIENT
  Age: 45 Year
  Sex: Female
  Weight: 63.5 kg

DRUGS (6)
  1. REMICADE [Suspect]
     Indication: CROHN^S DISEASE
     Dosage: INITAL DOSING AND THEN EVERY 8 WEEKS
     Route: 042
     Dates: start: 20090528
  2. PHENERGAN [Concomitant]
  3. PREDNISONE [Concomitant]
  4. LORTAB [Concomitant]
  5. VALIUM [Concomitant]
  6. TYLENOL [Concomitant]
     Indication: PAIN

REACTIONS (9)
  - Cardiac failure congestive [Unknown]
  - Pneumocystis jirovecii pneumonia [Unknown]
  - Crohn^s disease [Recovered/Resolved]
  - Pyelonephritis [Unknown]
  - Liver function test abnormal [Unknown]
  - Rash [Recovered/Resolved]
  - Back pain [Unknown]
  - Myalgia [Unknown]
  - Onychomadesis [Unknown]
